FAERS Safety Report 5720342-7 (Version None)
Quarter: 2008Q2

REPORT INFORMATION
  Report Type: 
  Country: None (occurrence: None)
  Receive Date: 20080428
  Receipt Date: 20080416
  Transmission Date: 20081010
  Serious: Yes (Other)
  Sender: FDA-Public Use
  Company Number: FR-PFIZER INC-2008029575

PATIENT
  Sex: Female
  Weight: 53 kg

DRUGS (12)
  1. CHAMPIX [Suspect]
     Indication: SMOKING CESSATION THERAPY
  2. PREVISCAN [Interacting]
     Dosage: DAILY DOSE:20MG-TEXT:DAILY
  3. SECTRAL [Concomitant]
     Dosage: TEXT:ONE HALF TABLET IN THE AM AND PM
  4. STILNOX [Concomitant]
  5. CODOLIPRANE [Concomitant]
     Dosage: TEXT:TWO TABLETS IN THE MORNING
  6. LASILIX [Concomitant]
  7. POTASSIUM CHLORIDE [Concomitant]
  8. DIGOXIN [Concomitant]
  9. ATORVASTATIN CALCIUM [Concomitant]
     Dosage: DAILY DOSE:20MG-FREQ:IN THE EVENING
  10. ALLOPURINOL [Concomitant]
  11. STRONTIUM RANELATE [Concomitant]
  12. CALCIUM D3 ^STADA^ [Concomitant]
     Dosage: FREQ:ONE IN THE MORNING

REACTIONS (2)
  - DRUG INTERACTION [None]
  - INTERNATIONAL NORMALISED RATIO INCREASED [None]
